FAERS Safety Report 12645085 (Version 10)
Quarter: 2018Q3

REPORT INFORMATION
  Report Type: Spontaneous
  Country: US (occurrence: US)
  Receive Date: 20160811
  Receipt Date: 20180719
  Transmission Date: 20181010
  Serious: Yes (Congenital Anomaly, Other)
  Sender: FDA-Public Use
  Company Number: PHHY2015US130885

PATIENT
  Sex: Female

DRUGS (1)
  1. ZOFRAN [Suspect]
     Active Substance: ONDANSETRON HYDROCHLORIDE
     Indication: FOETAL EXPOSURE DURING PREGNANCY
     Dosage: MOTHER^S DOSE: 4 MG, TID
     Route: 064

REACTIONS (28)
  - Foetal exposure during pregnancy [Unknown]
  - Fatigue [Unknown]
  - Left ventricular dysfunction [Unknown]
  - Dilatation atrial [Unknown]
  - Patent ductus arteriosus [Unknown]
  - Selective eating disorder [Unknown]
  - Dehydration [Unknown]
  - Congenital tricuspid valve incompetence [Unknown]
  - Cardiac ventricular disorder [Unknown]
  - Heart disease congenital [Unknown]
  - Ebstein^s anomaly [Unknown]
  - Cardiomegaly [Unknown]
  - Tachycardia [Unknown]
  - Asthma [Unknown]
  - Hypoplastic left heart syndrome [Unknown]
  - Atrial septal defect [Unknown]
  - Pulmonary valve stenosis [Unknown]
  - Supraventricular tachycardia [Unknown]
  - Dyspepsia [Unknown]
  - Cardiovascular disorder [Unknown]
  - Congenital myopathy [Unknown]
  - Congenital pulmonary valve atresia [Unknown]
  - Neonatal respiratory distress [Unknown]
  - Cardiac murmur [Unknown]
  - Chest pain [Unknown]
  - Neonatal tachypnoea [Unknown]
  - Upper respiratory tract infection [Unknown]
  - Acidosis [Recovering/Resolving]
